FAERS Safety Report 7509396-5 (Version None)
Quarter: 2011Q2

REPORT INFORMATION
  Report Type: 
  Country: None (occurrence: None)
  Receive Date: 20110527
  Receipt Date: 20110524
  Transmission Date: 20111010
  Serious: Yes (Other)
  Sender: FDA-Public Use
  Company Number: JP-PFIZER INC-2011112000

PATIENT
  Age: 12 Year
  Sex: Male

DRUGS (1)
  1. GENOTROPIN [Suspect]
     Dosage: 0.8 MG, 1X/DAY
     Route: 041
     Dates: start: 20090717

REACTIONS (2)
  - PROTEINURIA [None]
  - INCORRECT ROUTE OF DRUG ADMINISTRATION [None]
